FAERS Safety Report 16651298 (Version 2)
Quarter: 2021Q4

REPORT INFORMATION
  Report Type: Report from Study
  Country: DE (occurrence: DE)
  Receive Date: 20190731
  Receipt Date: 20211020
  Transmission Date: 20220303
  Serious: Yes (Hospitalization, Other)
  Sender: FDA-Public Use
  Company Number: DE-BRISTOL-MYERS SQUIBB COMPANY-BMS-2017-024979

PATIENT
  Age: 55 Year
  Sex: Male

DRUGS (2)
  1. METHOTREXATE [Suspect]
     Active Substance: METHOTREXATE
     Indication: Rheumatoid arthritis
     Dosage: UNK
     Route: 065
  2. ABATACEPT [Suspect]
     Active Substance: ABATACEPT
     Indication: Rheumatoid arthritis
     Dosage: 125 MILLIGRAM, QW
     Route: 058

REACTIONS (5)
  - Fall [Recovered/Resolved]
  - Contusion [Recovered/Resolved]
  - Angina pectoris [Recovered/Resolved]
  - Respiratory tract infection [Unknown]
  - Nausea [Unknown]

NARRATIVE: CASE EVENT DATE: 20160928
